FAERS Safety Report 17147004 (Version 2)
Quarter: 2020Q1

REPORT INFORMATION
  Report Type: Spontaneous
  Country: DE (occurrence: DE)
  Receive Date: 20191212
  Receipt Date: 20200316
  Transmission Date: 20200409
  Serious: Yes (Hospitalization, Other)
  Sender: FDA-Public Use
  Company Number: NVSC2019DE061836

PATIENT
  Age: 37 Year
  Sex: Male

DRUGS (4)
  1. LYRICA [Suspect]
     Active Substance: PREGABALIN
     Dosage: 300 MG, QD, 150 MG, 2X/DAY (150 MG IN THE MORNING, 150 MG IN THE EVENING)
     Route: 048
     Dates: start: 2017, end: 20190822
  2. RITALIN [Suspect]
     Active Substance: METHYLPHENIDATE HYDROCHLORIDE
     Indication: PRODUCT USED FOR UNKNOWN INDICATION
     Dosage: 100 MG, QD, (40 MG IN THE MORNING, 60 MG AT NOON)
     Route: 048
     Dates: start: 20180204, end: 20190815
  3. LYRICA [Suspect]
     Active Substance: PREGABALIN
     Indication: PRODUCT USED FOR UNKNOWN INDICATION
     Dosage: 150 MG, Q12H (150 MG MORGENS, 150 MG ABENDS)
     Route: 048
     Dates: start: 2017, end: 20190822
  4. PANTOPRAZOLE [Concomitant]
     Active Substance: PANTOPRAZOLE
     Indication: PRODUCT USED FOR UNKNOWN INDICATION
     Dosage: UNK
     Route: 065

REACTIONS (12)
  - Decreased appetite [Recovering/Resolving]
  - Suicidal ideation [Recovering/Resolving]
  - Depersonalisation/derealisation disorder [Recovering/Resolving]
  - Depression [Recovering/Resolving]
  - Hallucinations, mixed [Recovering/Resolving]
  - Tremor [Recovering/Resolving]
  - Insomnia [Recovering/Resolving]
  - Feeling abnormal [Recovering/Resolving]
  - Nausea [Recovering/Resolving]
  - Aggression [Recovering/Resolving]
  - Dizziness [Recovering/Resolving]
  - Intentional self-injury [Unknown]

NARRATIVE: CASE EVENT DATE: 2019
